FAERS Safety Report 9191329 (Version 2)
Quarter: 2013Q2

REPORT INFORMATION
  Report Type: Spontaneous
  Country: US (occurrence: US)
  Receive Date: 20130326
  Receipt Date: 20130408
  Transmission Date: 20140414
  Serious: No
  Sender: FDA-Public Use
  Company Number: US-009507513-1303USA012750

PATIENT
  Age: 70 Year
  Sex: Male
  Weight: 77.98 kg

DRUGS (10)
  1. MIRALAX [Suspect]
     Indication: CONSTIPATION
     Dosage: 17 G, BID
     Route: 048
     Dates: start: 20130221, end: 20130228
  2. MIRALAX [Suspect]
     Indication: MEDICAL OBSERVATION
  3. ONGLYZA [Concomitant]
     Indication: DIABETES MELLITUS
     Dosage: 5 MG, UNKNOWN
  4. METOPROLOL [Concomitant]
     Indication: HYPERTENSION
     Dosage: 100 MG, UNKNOWN
  5. LISINOPRIL [Concomitant]
     Indication: HYPERTENSION
     Dosage: 40 MG, UNKNOWN
  6. FELODIPINE [Concomitant]
     Indication: HYPERTENSION
     Dosage: 10 MG, UNKNOWN
  7. CRESTOR [Concomitant]
     Indication: BLOOD CHOLESTEROL INCREASED
     Dosage: 20 MG, UNKNOWN
  8. ASCORBIC ACID [Concomitant]
     Indication: PRODUCT USED FOR UNKNOWN INDICATION
     Dosage: UNK, UNKNOWN
  9. CALCIUM (UNSPECIFIED) [Concomitant]
     Indication: PRODUCT USED FOR UNKNOWN INDICATION
     Dosage: 500 MG, UNKNOWN
  10. VITAMIN D (UNSPECIFIED) [Concomitant]
     Indication: PRODUCT USED FOR UNKNOWN INDICATION
     Dosage: UNK, UNKNOWN

REACTIONS (2)
  - Pain [Recovered/Resolved]
  - Drug ineffective [Unknown]
